FAERS Safety Report 6715564-2 (Version None)
Quarter: 2010Q2

REPORT INFORMATION
  Report Type: 
  Country: None (occurrence: None)
  Receive Date: 20100507
  Receipt Date: 20100426
  Transmission Date: 20101027
  Serious: Yes (Other)
  Sender: FDA-Public Use
  Company Number: PHHY2010BR27299

PATIENT
  Sex: Female
  Weight: 87 kg

DRUGS (4)
  1. EXFORGE [Suspect]
     Indication: HYPERTENSION
     Dosage: 1 DF, QD
     Route: 048
  2. HYDROCHLOROTHIAZIDE [Concomitant]
     Indication: HYPERTENSION
     Dosage: 1 TABLET DAILY
     Route: 048
  3. SIMVASTATIN [Concomitant]
     Indication: BLOOD CHOLESTEROL
     Dosage: 1 TABLET AT NIGHT
     Route: 048
  4. ATENSINA [Concomitant]
     Indication: HYPERTENSION
     Dosage: 1 TABLET DAILY IN THE MORNING
     Route: 048
     Dates: start: 20091201

REACTIONS (11)
  - ABDOMINAL DISCOMFORT [None]
  - ASTHENIA [None]
  - ASTHMA [None]
  - COLD SWEAT [None]
  - DIZZINESS [None]
  - ELECTROENCEPHALOGRAM ABNORMAL [None]
  - FATIGUE [None]
  - GLUCOSE URINE PRESENT [None]
  - MEMORY IMPAIRMENT [None]
  - SYNCOPE [None]
  - WHEEZING [None]
